FAERS Safety Report 9554646 (Version 2)
Quarter: 2013Q3

REPORT INFORMATION
  Report Type: Spontaneous
  Country: MX (occurrence: MX)
  Receive Date: 20130925
  Receipt Date: 20130930
  Transmission Date: 20140515
  Serious: Yes (Other)
  Sender: FDA-Public Use
  Company Number: MX-PFIZER INC-2013275344

PATIENT
  Sex: 0

DRUGS (1)
  1. HALCION [Suspect]

REACTIONS (1)
  - Dementia Alzheimer^s type [Unknown]
